FAERS Safety Report 11030254 (Version 1)
Quarter: 2015Q2

REPORT INFORMATION
  Report Type: Spontaneous
  Country: US (occurrence: US)
  Receive Date: 20150415
  Receipt Date: 20150415
  Transmission Date: 20150821
  Serious: Yes (Hospitalization, Other)
  Sender: FDA-Public Use
  Company Number: US-AMGEN-USASP2015032935

PATIENT
  Age: 68 Year
  Sex: Female

DRUGS (1)
  1. NPLATE [Suspect]
     Active Substance: ROMIPLOSTIM
     Indication: IMMUNE THROMBOCYTOPENIC PURPURA
     Dosage: UNK
     Route: 065

REACTIONS (14)
  - Platelet count decreased [Unknown]
  - Vitamin B complex deficiency [Unknown]
  - Knee operation [Unknown]
  - Procedural pain [Unknown]
  - Pain [Unknown]
  - Cardiac pacemaker insertion [Unknown]
  - Fatigue [Unknown]
  - Vitamin D deficiency [Unknown]
  - Feeling abnormal [Unknown]
  - Bone pain [Unknown]
  - Injection site pain [Unknown]
  - Arthralgia [Unknown]
  - Drug withdrawal syndrome [Unknown]
  - Insomnia [Unknown]

NARRATIVE: CASE EVENT DATE: 2014
